FAERS Safety Report 23890993 (Version 1)
Quarter: 2024Q2

REPORT INFORMATION
  Report Type: Spontaneous
  Country: FR (occurrence: FR)
  Receive Date: 20240523
  Receipt Date: 20240523
  Transmission Date: 20240716
  Serious: Yes (Other)
  Sender: FDA-Public Use
  Company Number: None

PATIENT
  Age: 61 Year
  Sex: Female

DRUGS (1)
  1. BETAMETHASONE DIPROPIONATE\BETAMETHASONE SODIUM PHOSPHATE [Suspect]
     Active Substance: BETAMETHASONE DIPROPIONATE\BETAMETHASONE SODIUM PHOSPHATE
     Indication: Arthralgia
     Dosage: 1 DOSAGE FORM, QD
     Route: 014
     Dates: start: 20240402, end: 20240402

REACTIONS (3)
  - Erythrosis [Not Recovered/Not Resolved]
  - Rash [Not Recovered/Not Resolved]
  - Erythrosis [Not Recovered/Not Resolved]

NARRATIVE: CASE EVENT DATE: 20240403
